FAERS Safety Report 5500980-7 (Version None)
Quarter: 2007Q4

REPORT INFORMATION
  Report Type: 
  Country: None (occurrence: None)
  Receive Date: 20071029
  Receipt Date: 20071022
  Transmission Date: 20080405
  Serious: Yes (Hospitalization, Disabling)
  Sender: FDA-Public Use
  Company Number: PHBS2007DK17728

PATIENT
  Age: 24 Year
  Sex: Female

DRUGS (1)
  1. TOBI [Suspect]
     Indication: CYSTIC FIBROSIS

REACTIONS (3)
  - DEAFNESS UNILATERAL [None]
  - HEARING DISABILITY [None]
  - RESPIRATORY DISTRESS [None]
